FAERS Safety Report 17890362 (Version 1)
Quarter: 2020Q2

REPORT INFORMATION
  Report Type: Spontaneous
  Country: ES (occurrence: ES)
  Receive Date: 20200612
  Receipt Date: 20200612
  Transmission Date: 20200714
  Serious: Yes (Other)
  Sender: FDA-Public Use
  Company Number: ES-PFIZER INC-2020226001

PATIENT
  Age: 70 Year
  Sex: Male

DRUGS (2)
  1. SUNITINIB MALATE. [Suspect]
     Active Substance: SUNITINIB MALATE
     Indication: RENAL CANCER RECURRENT
     Dosage: UNK, CYCLIC (FIRST-LINE TREATMENT)
  2. NIVOLUMAB [Suspect]
     Active Substance: NIVOLUMAB
     Indication: RENAL CANCER RECURRENT
     Dosage: UNK UNK, CYCLIC AS SECOND-LINE TREATMENT

REACTIONS (5)
  - Renal impairment [Recovered/Resolved]
  - Nephropathy toxic [Recovered/Resolved]
  - Tubulointerstitial nephritis [Unknown]
  - Thrombotic microangiopathy [Unknown]
  - Toxicity to various agents [Unknown]
